FAERS Safety Report 8261598-9 (Version None)
Quarter: 2012Q2

REPORT INFORMATION
  Report Type: 
  Country: None (occurrence: None)
  Receive Date: 20120402
  Receipt Date: 20120319
  Transmission Date: 20120825
  Serious: Yes (Death, Other)
  Sender: FDA-Public Use
  Company Number: HA12-052-AE

PATIENT
  Age: 59 Year
  Sex: Male
  Weight: 91.2 kg

DRUGS (5)
  1. NAPROXEN [Suspect]
     Indication: OSTEOARTHRITIS
     Dosage: HIGH DOSE, TID, ORAL
     Route: 048
     Dates: start: 20081205
  2. NAPROXEN [Suspect]
     Indication: RHEUMATOID ARTHRITIS
     Dosage: HIGH DOSE, TID, ORAL
     Route: 048
     Dates: start: 20081205
  3. NEXIUM [Concomitant]
  4. CELECOXIB, IBUPROFEN, PLACEBO [Suspect]
     Indication: RHEUMATOID ARTHRITIS
     Dosage: HIGH DOSE, TID, ORAL
     Route: 048
     Dates: start: 20081205
  5. CELECOXIB, IBUPROFEN, PLACEBO [Suspect]
     Indication: OSTEOARTHRITIS
     Dosage: HIGH DOSE, TID, ORAL
     Route: 048
     Dates: start: 20081205

REACTIONS (5)
  - ARTERIOSCLEROSIS [None]
  - VENTRICULAR FIBRILLATION [None]
  - CARDIAC ARREST [None]
  - VENTRICULAR TACHYCARDIA [None]
  - RESPIRATORY ARREST [None]
